FAERS Safety Report 22535288 (Version 2)
Quarter: 2023Q2

REPORT INFORMATION
  Report Type: Spontaneous
  Country: US (occurrence: US)
  Receive Date: 20230608
  Receipt Date: 20230609
  Transmission Date: 20230721
  Serious: Yes (Death, Other)
  Sender: FDA-Public Use
  Company Number: US-002147023-NVSC2023US130406

PATIENT
  Sex: Male
  Weight: 108 kg

DRUGS (1)
  1. CEFTRIAXONE SODIUM [Suspect]
     Active Substance: CEFTRIAXONE SODIUM
     Indication: Osteomyelitis
     Dosage: 2 G, Q24H (EVERY 24 HOURS) (10G BULK VIAL)
     Route: 042

REACTIONS (3)
  - Death [Fatal]
  - Product contamination [Unknown]
  - Poor quality product administered [Unknown]
